FAERS Safety Report 10170457 (Version 1)
Quarter: 2014Q2

REPORT INFORMATION
  Report Type: Report from Study
  Country: US (occurrence: US)
  Receive Date: 20140513
  Receipt Date: 20140513
  Transmission Date: 20141212
  Serious: No
  Sender: FDA-Public Use
  Company Number: PHEH2014US009353

PATIENT
  Sex: Female

DRUGS (1)
  1. TASIGNA [Suspect]
     Dosage: 150 MG, UNK
     Route: 048
     Dates: start: 20140505

REACTIONS (1)
  - Accidental exposure to product [Recovered/Resolved]
